FAERS Safety Report 7768331-5 (Version None)
Quarter: 2011Q3

REPORT INFORMATION
  Report Type: 
  Country: None (occurrence: None)
  Receive Date: 20110922
  Receipt Date: 20110308
  Transmission Date: 20111222
  Serious: No
  Sender: FDA-Public Use
  Company Number: US-ASTRAZENECA-2011SE12820

PATIENT
  Age: 49 Year
  Sex: Female

DRUGS (4)
  1. SEROQUEL [Suspect]
     Route: 048
  2. SEROQUEL [Suspect]
     Indication: ANXIETY
     Route: 048
     Dates: start: 20010101
  3. SEROQUEL [Suspect]
     Indication: HEAD DISCOMFORT
     Route: 048
     Dates: start: 20010101
  4. SEROQUEL [Suspect]
     Route: 048

REACTIONS (4)
  - OFF LABEL USE [None]
  - DECREASED ACTIVITY [None]
  - FEELING ABNORMAL [None]
  - DRUG DOSE OMISSION [None]
